FAERS Safety Report 8122460-5 (Version None)
Quarter: 2012Q1

REPORT INFORMATION
  Report Type: 
  Country: None (occurrence: None)
  Receive Date: 20120208
  Receipt Date: 20110616
  Transmission Date: 20120608
  Serious: No
  Sender: FDA-Public Use
  Company Number: US-ASTRAZENECA-2009SE30127

PATIENT
  Age: 55 Year
  Sex: Female

DRUGS (1)
  1. ACCOLATE [Suspect]
     Route: 048

REACTIONS (4)
  - EPIGASTRIC DISCOMFORT [None]
  - DYSURIA [None]
  - HEADACHE [None]
  - INSOMNIA [None]
